FAERS Safety Report 15656909 (Version 1)
Quarter: 2018Q4

REPORT INFORMATION
  Report Type: Spontaneous
  Country: GB (occurrence: GB)
  Receive Date: 20181126
  Receipt Date: 20181126
  Transmission Date: 20190205
  Serious: Yes (Other)
  Sender: FDA-Public Use
  Company Number: GB-SA-2018SA318323

PATIENT
  Age: 5 Year
  Sex: Male
  Weight: 6 kg

DRUGS (3)
  1. MOVICOL [Concomitant]
     Active Substance: POLYETHYLENE GLYCOL 3350\POTASSIUM CHLORIDE\SODIUM BICARBONATE\SODIUM CHLORIDE
     Dosage: 4 SACHETS ON FIRST DAY, THEN INCREASED IN STEPS.
     Dates: start: 20180803, end: 20181012
  2. DOCUSATE CALCIUM. [Suspect]
     Active Substance: DOCUSATE CALCIUM
     Dosage: TAKE 5-10ML UP TO THREE TIMES DAILY TO PREVENT...; 12.5MG/5ML
     Route: 048
     Dates: start: 20181012
  3. SODIUM PICOSULFATE [Concomitant]
     Active Substance: SODIUM PICOSULFATE
     Dosage: 2.5ML-20ML ONCE A AT NIGHT BEFORE BED, ADJUSTED
     Dates: start: 20180914, end: 20180921

REACTIONS (1)
  - Rash [Recovering/Resolving]

NARRATIVE: CASE EVENT DATE: 20181102
